FAERS Safety Report 24702193 (Version 1)
Quarter: 2024Q4

REPORT INFORMATION
  Report Type: Spontaneous
  Country: US (occurrence: US)
  Receive Date: 20241205
  Receipt Date: 20241205
  Transmission Date: 20250115
  Serious: No
  Sender: LANNETT
  Company Number: LANN2400974

PATIENT
  Sex: Male

DRUGS (1)
  1. RABEPRAZOLE SODIUM [Suspect]
     Active Substance: RABEPRAZOLE SODIUM
     Indication: Gastrooesophageal reflux disease
     Dosage: UNK
     Route: 065
     Dates: end: 20240724

REACTIONS (4)
  - Brain fog [Unknown]
  - Confusional state [Unknown]
  - Dizziness [Unknown]
  - Ill-defined disorder [Unknown]
